FAERS Safety Report 24290940 (Version 3)
Quarter: 2024Q4

REPORT INFORMATION
  Report Type: Report from Study
  Country: JP (occurrence: JP)
  Receive Date: 20240906
  Receipt Date: 20241019
  Transmission Date: 20250114
  Serious: Yes (Death, Hospitalization)
  Sender: ABBVIE
  Company Number: JP-ABBVIE-5909795

PATIENT
  Age: 74 Year
  Sex: Female
  Weight: 34 kg

DRUGS (7)
  1. CARBIDOPA\LEVODOPA [Suspect]
     Active Substance: CARBIDOPA\LEVODOPA
     Indication: Parkinson^s disease
     Dosage: MD: 11.0 ML, CD: 3.5 ML/HR, ED: 1.8 ML/UNIT
     Route: 050
     Dates: start: 20240327, end: 20240905
  2. CARBIDOPA\LEVODOPA [Suspect]
     Active Substance: CARBIDOPA\LEVODOPA
  3. CLONAZEPAM [Concomitant]
     Active Substance: CLONAZEPAM
     Indication: Myoclonus
     Dosage: 1.0 MILLIGRAM
     Route: 048
     Dates: end: 20240904
  4. ROTIGOTINE [Concomitant]
     Active Substance: ROTIGOTINE
     Indication: Parkinson^s disease
     Dosage: 18 MILLIGRAM
     Route: 062
     Dates: end: 20240904
  5. MAGNESIUM OXIDE [Concomitant]
     Active Substance: MAGNESIUM OXIDE
     Indication: Constipation
     Dosage: 660 MILLIGRAM 2 TIMES A DAY
     Route: 048
     Dates: start: 20240817, end: 20240905
  6. SAFINAMIDE MESYLATE [Concomitant]
     Active Substance: SAFINAMIDE MESYLATE
     Indication: Parkinson^s disease
     Dosage: 50 MILLIGRAM
     Route: 048
     Dates: start: 20240210, end: 20240905
  7. METHYLCOBALAMIN [Concomitant]
     Active Substance: METHYLCOBALAMIN
     Indication: Prophylaxis
     Dosage: 500 MICROGRAM
     Route: 048
     Dates: start: 20240622, end: 20240904

REACTIONS (10)
  - Sudden cardiac death [Fatal]
  - Restlessness [Unknown]
  - Loss of consciousness [Unknown]
  - Respiratory arrest [Unknown]
  - Seizure [Fatal]
  - Dyskinesia [Unknown]
  - Pallor [Unknown]
  - Stoma site haemorrhage [Unknown]
  - Pyrexia [Unknown]
  - Cardiac arrest [Fatal]

NARRATIVE: CASE EVENT DATE: 20240423
